FAERS Safety Report 9481107 (Version 1)
Quarter: 2013Q3

REPORT INFORMATION
  Report Type: Spontaneous
  Country: US (occurrence: US)
  Receive Date: 20130828
  Receipt Date: 20130828
  Transmission Date: 20140515
  Serious: Yes (Other)
  Sender: FDA-Public Use
  Company Number: US-AMGEN-KDL153866

PATIENT
  Age: 50 Year
  Sex: Female

DRUGS (2)
  1. ENBREL [Suspect]
     Indication: RHEUMATOID ARTHRITIS
     Dosage: 50 MG, QWK
     Route: 058
     Dates: start: 20041010
  2. METHOTREXATE [Concomitant]
     Dosage: .7 MG, UNK
     Dates: start: 2004

REACTIONS (3)
  - Gastric ulcer [Recovered/Resolved]
  - Fungal infection [Recovered/Resolved]
  - Oesophageal infection [Recovered/Resolved]
